FAERS Safety Report 5818756-X (Version None)
Quarter: 2008Q3

REPORT INFORMATION
  Report Type: 
  Country: None (occurrence: None)
  Receive Date: 20080718
  Receipt Date: 20080718
  Transmission Date: 20090109
  Serious: No
  Sender: FDA-Public Use
  Company Number: None

PATIENT
  Age: 86 Year
  Sex: Female
  Weight: 86.1834 kg

DRUGS (2)
  1. ALBUTEROL [Suspect]
     Indication: CHRONIC OBSTRUCTIVE PULMONARY DISEASE
     Dosage: 0.083% SOLUTION 3ML QID INH
     Route: 055
     Dates: start: 20080530, end: 20080701
  2. IPRATROPIUM BROMIDE [Suspect]
     Dosage: 0.02% SOLUTION 3 ML QID INH
     Route: 055

REACTIONS (1)
  - STOMATITIS [None]
